FAERS Safety Report 9462045 (Version 2)
Quarter: 2013Q3

REPORT INFORMATION
  Report Type: Spontaneous
  Country: US (occurrence: US)
  Receive Date: 20130816
  Receipt Date: 20130827
  Transmission Date: 20140515
  Serious: No
  Sender: FDA-Public Use
  Company Number: US-TEVA-426546USA

PATIENT
  Sex: Female

DRUGS (1)
  1. ACTIQ [Suspect]
     Route: 048

REACTIONS (4)
  - Abnormal behaviour [Unknown]
  - Oxygen consumption [Unknown]
  - Pain [Unknown]
  - Crying [Unknown]
